FAERS Safety Report 21890616 (Version 2)
Quarter: 2023Q2

REPORT INFORMATION
  Report Type: Spontaneous
  Country: US (occurrence: US)
  Receive Date: 20230120
  Receipt Date: 20230430
  Transmission Date: 20230722
  Serious: Yes (Other)
  Sender: FDA-Public Use
  Company Number: US-drreddys-SPO/USA/23/0159895

PATIENT
  Age: 65 Year
  Sex: Female

DRUGS (3)
  1. LENALIDOMIDE [Suspect]
     Active Substance: LENALIDOMIDE
     Indication: Plasma cell myeloma
     Dosage: FOR 3 WEEKS FOLLOWED BY 1 WEEK OFF
     Route: 048
     Dates: start: 20221117
  2. ASPIRIN CHE 81MG [Concomitant]
     Indication: Product used for unknown indication
     Dosage: CHE
  3. LISINOPRIL TAB 40MG [Concomitant]
     Indication: Product used for unknown indication

REACTIONS (4)
  - Plasma cell myeloma [Unknown]
  - Drug ineffective [Unknown]
  - Sinusitis [Recovered/Resolved]
  - Product quality issue [Unknown]
